FAERS Safety Report 7207506-0 (Version None)
Quarter: 2011Q1

REPORT INFORMATION
  Report Type: 
  Country: None (occurrence: None)
  Receive Date: 20110103
  Receipt Date: 20101222
  Transmission Date: 20110831
  Serious: Yes (Hospitalization, Disabling, Other)
  Sender: FDA-Public Use
  Company Number: ES-ELI_LILLY_AND_COMPANY-ES201012005670

PATIENT
  Sex: Female
  Weight: 60 kg

DRUGS (10)
  1. LYRICA [Concomitant]
     Indication: MUSCLE SPASMS
     Dosage: 1 D/F, DAILY (1/D)
     Route: 048
     Dates: start: 20101001
  2. SINTROM [Concomitant]
     Indication: CEREBROVASCULAR ACCIDENT
     Dosage: 1 MG, DAILY (1/D)
     Route: 048
     Dates: end: 20101001
  3. LIPOSCLER [Concomitant]
     Indication: HYPERLIPIDAEMIA
     Dosage: 40 MG, DAILY (1/D)
     Route: 048
  4. PLAVIX [Concomitant]
     Indication: CEREBROVASCULAR ACCIDENT
     Dosage: 1 D/F, DAILY (1/D)
     Route: 048
     Dates: start: 20101001
  5. FORTEO [Suspect]
     Indication: OSTEOPOROSIS
     Dosage: 20 UG, DAILY (1/D)
     Route: 058
     Dates: start: 20100401
  6. FERO-GRADUMET [Concomitant]
     Indication: ANAEMIA
     Dosage: 1 D/F, DAILY (1/D)
     Route: 048
  7. COZAAR [Concomitant]
     Indication: HYPERTENSION
     Dosage: 25 MG, DAILY (1/D)
     Route: 048
  8. FURANTOIN [Concomitant]
     Indication: PROPHYLAXIS URINARY TRACT INFECTION
     Dosage: 1 D/F, DAILY (1/D)
     Route: 048
  9. DEPRAX [Concomitant]
     Indication: DEPRESSION
     Dosage: 1 D/F, DAILY (1/D)
     Route: 048
  10. LEXATIN [Concomitant]
     Indication: ANXIETY
     Dosage: 1 D/F, DAILY (1/D)
     Route: 048
     Dates: start: 20101001

REACTIONS (2)
  - HEMIPLEGIA [None]
  - EFFUSION [None]
